FAERS Safety Report 4359063-4 (Version None)
Quarter: 2004Q2

REPORT INFORMATION
  Report Type: 
  Country: None (occurrence: None)
  Receive Date: 20040517
  Receipt Date: 20040510
  Transmission Date: 20050107
  Serious: Yes (Other)
  Sender: FDA-Public Use
  Company Number: BR-ROCHE-367413

PATIENT
  Age: 49 Year
  Sex: Female
  Weight: 43 kg

DRUGS (3)
  1. XELODA [Suspect]
     Dosage: FIRST CYCLE WAS COMPLETED.
     Route: 048
     Dates: start: 20040411, end: 20040417
  2. XELODA [Suspect]
     Dosage: STARTED SECOND CYCLE.
     Route: 048
     Dates: start: 20040506
  3. TRAMAL [Concomitant]
     Indication: PAIN
     Route: 048

REACTIONS (1)
  - TUMOUR MARKER INCREASED [None]
